FAERS Safety Report 18384944 (Version 2)
Quarter: 2020Q4

REPORT INFORMATION
  Report Type: Other
  Country: US (occurrence: US)
  Receive Date: 20201014
  Receipt Date: 20201207
  Transmission Date: 20210114
  Serious: Yes (Other)
  Sender: FDA-Public Use
  Company Number: US-ROCHE-2693513

PATIENT

DRUGS (1)
  1. ALTEPLASE. [Suspect]
     Active Substance: ALTEPLASE
     Indication: INFECTIOUS PLEURAL EFFUSION
     Route: 034

REACTIONS (4)
  - Haemorrhage [Recovered/Resolved]
  - Oxygen saturation decreased [Unknown]
  - Pulmonary haemorrhage [Recovered/Resolved]
  - Pain [Unknown]
